FAERS Safety Report 9724614 (Version 1)
Quarter: 2013Q4

REPORT INFORMATION
  Report Type: Spontaneous
  Country: US (occurrence: US)
  Receive Date: 20131202
  Receipt Date: 20131202
  Transmission Date: 20140711
  Serious: No
  Sender: FDA-Public Use
  Company Number: US-AMGEN-USASP2013080918

PATIENT
  Age: 57 Year
  Sex: Female

DRUGS (3)
  1. ENBREL [Suspect]
     Indication: RHEUMATOID ARTHRITIS
     Dosage: 25 MG, 2 TIMES/WK
     Route: 065
     Dates: start: 20021201
  2. ENBREL [Suspect]
  3. SIMPONI [Concomitant]
     Dosage: UNK

REACTIONS (4)
  - Pain [Recovered/Resolved]
  - Swelling [Recovered/Resolved]
  - Cough [Unknown]
  - Rheumatoid arthritis [Not Recovered/Not Resolved]
